FAERS Safety Report 25474076 (Version 1)
Quarter: 2025Q2

REPORT INFORMATION
  Report Type: Spontaneous
  Country: US (occurrence: US)
  Receive Date: 20250624
  Receipt Date: 20250624
  Transmission Date: 20250716
  Serious: Yes (Other)
  Sender: REGENERON
  Company Number: US-REGENERON PHARMACEUTICALS, INC.-2024-122607

PATIENT
  Sex: Male

DRUGS (14)
  1. EYLEA HD [Suspect]
     Active Substance: AFLIBERCEPT
     Indication: Neovascular age-related macular degeneration
  2. EYLEA HD [Suspect]
     Active Substance: AFLIBERCEPT
     Dosage: 8 MG, EVERY 8 WEEKS INTO LEFT EYE (FORMULATION: HD VIAL, STRENGTH: 8MG/0.07ML)
  3. EYLEA HD [Suspect]
     Active Substance: AFLIBERCEPT
     Dosage: 8 MG, EVERY 8 WEEKS INTO LEFT EYE (FORMULATION: HD VIAL, STRENGTH: 8MG/0.07ML)
     Dates: start: 20240321, end: 20240321
  4. EYLEA HD [Suspect]
     Active Substance: AFLIBERCEPT
     Dates: start: 20240607, end: 20240607
  5. EYLEA HD [Suspect]
     Active Substance: AFLIBERCEPT
     Dosage: 8 MG, EVERY 8 WEEKS INTO LEFT EYE (FORMULATION: HD VIAL, STRENGTH: 8MG/0.07ML)
     Dates: start: 20240711, end: 20240711
  6. EYLEA HD [Suspect]
     Active Substance: AFLIBERCEPT
     Dates: start: 20240815, end: 20240815
  7. DIAZEPAM [Concomitant]
     Active Substance: DIAZEPAM
     Indication: Product used for unknown indication
     Route: 048
  8. ASPIRIN [Concomitant]
     Active Substance: ASPIRIN
     Indication: Product used for unknown indication
     Route: 048
  9. TRILIPIX [Concomitant]
     Active Substance: FENOFIBRIC ACID
     Indication: Product used for unknown indication
     Route: 048
  10. VASCEPA [Concomitant]
     Active Substance: ICOSAPENT ETHYL
     Indication: Product used for unknown indication
     Route: 048
  11. FLOMAX [Concomitant]
     Active Substance: TAMSULOSIN HYDROCHLORIDE
     Indication: Product used for unknown indication
     Route: 048
  12. CARDIZEM LA [Concomitant]
     Active Substance: DILTIAZEM HYDROCHLORIDE
     Indication: Product used for unknown indication
     Dosage: 180 MG, 24 HOURS, EXTENDED RELEASE TABLET
     Route: 048
  13. BENICAR [Concomitant]
     Active Substance: OLMESARTAN MEDOXOMIL
     Indication: Product used for unknown indication
     Route: 048
  14. VYTORIN [Concomitant]
     Active Substance: EZETIMIBE\SIMVASTATIN
     Indication: Product used for unknown indication
     Route: 048

REACTIONS (3)
  - Iritis [Recovered/Resolved]
  - Dry eye [Unknown]
  - Conjunctivitis [Unknown]

NARRATIVE: CASE EVENT DATE: 20240701
